FAERS Safety Report 9207307 (Version 2)
Quarter: 2013Q3

REPORT INFORMATION
  Report Type: Spontaneous
  Country: US (occurrence: None)
  Receive Date: 20120817
  Receipt Date: 20130815
  Transmission Date: 20140515
  Serious: Yes (Other)
  Sender: FDA-Public Use
  Company Number: ADR-2012-00285

PATIENT
  Age: 14 Year
  Sex: Female

DRUGS (5)
  1. LIORESAL [Suspect]
     Indication: MUSCLE SPASTICITY
     Route: 037
  2. ROBINUL [Concomitant]
  3. NASOCORT AQ [Concomitant]
  4. KEPPRA [Concomitant]
  5. SINGULAIR [Concomitant]

REACTIONS (4)
  - Drug withdrawal syndrome [None]
  - Pruritus [None]
  - Irritability [None]
  - Muscle twitching [None]
